FAERS Safety Report 10216467 (Version 1)
Quarter: 2014Q2

REPORT INFORMATION
  Report Type: Spontaneous
  Country: US (occurrence: US)
  Receive Date: 20140604
  Receipt Date: 20140604
  Transmission Date: 20141212
  Serious: Yes (Other)
  Sender: FDA-Public Use
  Company Number: US-ACTAVIS-2014-11926

PATIENT
  Age: 59 Year
  Sex: Female

DRUGS (2)
  1. CARBOPLATIN (WATSON LABORATORIES) [Suspect]
     Indication: OVARIAN CANCER
     Dosage: 6 AREA UNDER THE CURVE MONTHLY
     Route: 065
  2. PACLITAXEL [Concomitant]
     Indication: OVARIAN CANCER
     Dosage: 80 MG/M2, 1/WEEK
     Route: 065

REACTIONS (6)
  - Drug hypersensitivity [Recovered/Resolved]
  - Angina pectoris [Recovered/Resolved]
  - Tachycardia [Recovered/Resolved]
  - Rhinitis allergic [Recovered/Resolved]
  - Asthenia [Recovered/Resolved]
  - Palmar erythema [Recovered/Resolved]
